FAERS Safety Report 22136177 (Version 1)
Quarter: 2023Q1

REPORT INFORMATION
  Report Type: Spontaneous
  Country: KP (occurrence: KP)
  Receive Date: 20230324
  Receipt Date: 20230324
  Transmission Date: 20230418
  Serious: Yes (Hospitalization, Other)
  Sender: FDA-Public Use
  Company Number: KP-KVK-TECH, INC-20230300041

PATIENT
  Age: 58 Year
  Sex: Female
  Weight: 55 kg

DRUGS (1)
  1. PHENDIMETRAZINE TARTRATE [Suspect]
     Active Substance: PHENDIMETRAZINE TARTRATE
     Indication: Weight decreased
     Dosage: UNK, UNKNOWN
     Route: 065
     Dates: start: 2016, end: 2021

REACTIONS (1)
  - Paraganglion neoplasm [Recovered/Resolved]

NARRATIVE: CASE EVENT DATE: 20210101
